FAERS Safety Report 6873862-6 (Version None)
Quarter: 2010Q3

REPORT INFORMATION
  Report Type: 
  Country: None (occurrence: None)
  Receive Date: 20100723
  Receipt Date: 20090407
  Transmission Date: 20110219
  Serious: No
  Sender: FDA-Public Use
  Company Number: US-PFIZER INC-2009172271

PATIENT
  Sex: Female
  Weight: 67.131 kg

DRUGS (3)
  1. CHANTIX [Suspect]
     Indication: SMOKING CESSATION THERAPY
     Dates: start: 20090207, end: 20090211
  2. ZITHROMAX [Concomitant]
     Indication: RESPIRATORY DISORDER
     Dosage: UNK
  3. ALL OTHER THERAPEUTIC PRODUCTS [Concomitant]
     Indication: RESPIRATORY DISORDER
     Dosage: UNK

REACTIONS (2)
  - MENTAL DISORDER [None]
  - TREMOR [None]
